FAERS Safety Report 8221603-2 (Version None)
Quarter: 2012Q1

REPORT INFORMATION
  Report Type: 
  Country: None (occurrence: None)
  Receive Date: 20120315
  Receipt Date: 20120306
  Transmission Date: 20120608
  Serious: Yes (Disabling)
  Sender: FDA-Public Use
  Company Number: 2012SP012564

PATIENT
  Age: 39 Year
  Sex: Male

DRUGS (3)
  1. RIBAVIRIN [Suspect]
     Indication: HEPATITIS C
  2. VICTRELIS [Suspect]
     Indication: HEPATITIS C
     Dosage: 600 MG; QID; PO
     Route: 048
  3. PEGASYS [Suspect]
     Indication: HEPATITIS C

REACTIONS (2)
  - RECTAL HAEMORRHAGE [None]
  - PROCTALGIA [None]
